FAERS Safety Report 10840641 (Version 1)
Quarter: 2015Q1

REPORT INFORMATION
  Report Type: Report from Study
  Country: US (occurrence: US)
  Receive Date: 20150220
  Receipt Date: 20150220
  Transmission Date: 20150721
  Serious: Yes (Other)
  Sender: FDA-Public Use
  Company Number: US-ABBVIE-14P-163-1242363-00

PATIENT
  Age: 79 Year
  Sex: Female

DRUGS (3)
  1. WARFARIN [Concomitant]
     Active Substance: WARFARIN
     Indication: PRODUCT USED FOR UNKNOWN INDICATION
     Dosage: 1/2 TABLET
  2. ASPIRIN. [Concomitant]
     Active Substance: ASPIRIN
     Indication: PRODUCT USED FOR UNKNOWN INDICATION
  3. HUMIRA [Suspect]
     Active Substance: ADALIMUMAB
     Indication: RHEUMATOID ARTHRITIS
     Route: 058
     Dates: start: 2003, end: 201406

REACTIONS (5)
  - Atrial fibrillation [Recovered/Resolved]
  - Osteomyelitis [Recovering/Resolving]
  - Chills [Recovering/Resolving]
  - Pain [Not Recovered/Not Resolved]
  - Skin lesion [Recovering/Resolving]

NARRATIVE: CASE EVENT DATE: 2011
